FAERS Safety Report 8494256-6 (Version None)
Quarter: 2012Q3

REPORT INFORMATION
  Report Type: 
  Country: None (occurrence: None)
  Receive Date: 20120709
  Receipt Date: 20120705
  Transmission Date: 20120928
  Serious: Yes (Other)
  Sender: FDA-Public Use
  Company Number: PHHY2012KR057856

PATIENT
  Sex: Female

DRUGS (1)
  1. PARLODEL [Suspect]
     Indication: HYPERPROLACTINAEMIA
     Route: 048

REACTIONS (3)
  - SYNCOPE [None]
  - SHOCK [None]
  - HYPOTENSION [None]
